FAERS Safety Report 6172342-3 (Version None)
Quarter: 2009Q2

REPORT INFORMATION
  Report Type: 
  Country: None (occurrence: None)
  Receive Date: 20090429
  Receipt Date: 20090421
  Transmission Date: 20091009
  Serious: Yes (Hospitalization)
  Sender: FDA-Public Use
  Company Number: DE-ABBOTT-09P-062-0569094-00

PATIENT
  Sex: Male
  Weight: 125 kg

DRUGS (4)
  1. HUMIRA [Suspect]
     Indication: JUVENILE ARTHRITIS
     Route: 058
     Dates: start: 20090301
  2. DOXYCYCLIN [Concomitant]
     Indication: ANTIBIOTIC THERAPY
     Route: 065
  3. NOVALGIN [Concomitant]
     Indication: PYREXIA
     Route: 065
  4. PREDNISOLONE [Concomitant]
     Indication: ARTHRITIS
     Route: 065

REACTIONS (3)
  - DERMATITIS ALLERGIC [None]
  - DYSPNOEA [None]
  - INFECTION [None]
